FAERS Safety Report 7799622-X (Version None)
Quarter: 2011Q4

REPORT INFORMATION
  Report Type: 
  Country: None (occurrence: None)
  Receive Date: 20111006
  Receipt Date: 20110926
  Transmission Date: 20120403
  Serious: Yes (Hospitalization)
  Sender: FDA-Public Use
  Company Number: US-BAYER-2011-025391

PATIENT
  Age: 46 Year
  Sex: Female

DRUGS (5)
  1. DARVOCET [Concomitant]
  2. CALCIUM CARBONATE [Concomitant]
  3. YASMIN [Suspect]
     Indication: MENSTRUATION IRREGULAR
     Dosage: UNK
     Dates: start: 20040303, end: 20040326
  4. NAPROXEN (ALEVE) [Concomitant]
  5. MULTI-VITAMINS [Concomitant]

REACTIONS (6)
  - CHEST PAIN [None]
  - PAIN [None]
  - PULMONARY EMBOLISM [None]
  - EMOTIONAL DISTRESS [None]
  - INJURY [None]
  - PULMONARY THROMBOSIS [None]
